FAERS Safety Report 15106113 (Version 2)
Quarter: 2018Q3

REPORT INFORMATION
  Report Type: Spontaneous
  Country: US (occurrence: US)
  Receive Date: 20180704
  Receipt Date: 20180730
  Transmission Date: 20181010
  Serious: Yes (Hospitalization, Other)
  Sender: FDA-Public Use
  Company Number: US-ASTRAZENECA-2018SE83769

PATIENT
  Age: 53 Year
  Sex: Male
  Weight: 105.7 kg

DRUGS (4)
  1. BRILINTA [Suspect]
     Active Substance: TICAGRELOR
     Dosage: 180.0MG UNKNOWN
     Route: 048
     Dates: start: 20180407
  2. ASPIRIN. [Concomitant]
     Active Substance: ASPIRIN
     Indication: CORONARY ARTERY DISEASE
     Dosage: 81.0MG UNKNOWN
     Dates: start: 20180506
  3. LEVOTHYROXINE. [Concomitant]
     Active Substance: LEVOTHYROXINE
     Indication: HYPOTHYROIDISM
     Dosage: 125.0MG UNKNOWN
  4. ASPIRIN. [Concomitant]
     Active Substance: ASPIRIN
     Indication: ACUTE CORONARY SYNDROME
     Dosage: 81.0MG UNKNOWN
     Dates: start: 20180506

REACTIONS (3)
  - Hypotension [Unknown]
  - Bradycardia [Unknown]
  - Angina unstable [Unknown]

NARRATIVE: CASE EVENT DATE: 20180407
